FAERS Safety Report 5032343-5 (Version None)
Quarter: 2006Q2

REPORT INFORMATION
  Report Type: 
  Country: None (occurrence: None)
  Receive Date: 20060621
  Receipt Date: 20060621
  Transmission Date: 20061013
  Serious: Yes (Other)
  Sender: FDA-Public Use
  Company Number: None

PATIENT
  Age: 46 Year
  Sex: Male
  Weight: 99.7913 kg

DRUGS (4)
  1. GADOLINIUM CONTRAST [Suspect]
     Indication: NUCLEAR MAGNETIC RESONANCE IMAGING
  2. NARDIL [Concomitant]
  3. SERZONE [Concomitant]
  4. KLONIPIN [Concomitant]

REACTIONS (6)
  - DERMATITIS ALLERGIC [None]
  - DRUG INEFFECTIVE [None]
  - MORPHOEA [None]
  - SCLERODERMA [None]
  - SKIN LESION [None]
  - URTICARIA [None]
